FAERS Safety Report 14430476 (Version 1)
Quarter: 2018Q1

REPORT INFORMATION
  Report Type: Spontaneous
  Country: KR (occurrence: KR)
  Receive Date: 20180124
  Receipt Date: 20180124
  Transmission Date: 20180509
  Serious: Yes (Other)
  Sender: FDA-Public Use
  Company Number: KR-ALEXION PHARMACEUTICALS INC.-A201800582

PATIENT
  Age: 74 Year
  Sex: Male

DRUGS (3)
  1. SOLIRIS [Suspect]
     Active Substance: ECULIZUMAB
     Indication: PAROXYSMAL NOCTURNAL HAEMOGLOBINURIA
     Dosage: UNKNOWN
     Route: 065
     Dates: start: 201202
  2. SOLIRIS [Suspect]
     Active Substance: ECULIZUMAB
     Dosage: UNKNOWN
     Route: 065
  3. PREDNISONE. [Concomitant]
     Active Substance: PREDNISONE
     Indication: HAEMOLYSIS
     Dosage: 5 MG, QD
     Route: 065

REACTIONS (10)
  - Serum ferritin increased [Unknown]
  - Laboratory test abnormal [Unknown]
  - Blood erythropoietin increased [Unknown]
  - Drug effect incomplete [Unknown]
  - Haemoglobin decreased [Unknown]
  - Reticulocyte count increased [Unknown]
  - Blood lactate dehydrogenase increased [Unknown]
  - Total complement activity decreased [Unknown]
  - Coombs direct test positive [Unknown]
  - Reticulocyte percentage increased [Unknown]
